FAERS Safety Report 19279930 (Version 1)
Quarter: 2021Q2

REPORT INFORMATION
  Report Type: Spontaneous
  Country: GB (occurrence: GB)
  Receive Date: 20210520
  Receipt Date: 20210520
  Transmission Date: 20210717
  Serious: Yes (Hospitalization, Other)
  Sender: FDA-Public Use
  Company Number: GB-BAXTER-2021BAX011154

PATIENT
  Sex: Female

DRUGS (2)
  1. CYCLOPHOSPHAMIDE INJECTION 1G [Suspect]
     Active Substance: CYCLOPHOSPHAMIDE
     Indication: PRODUCT USED FOR UNKNOWN INDICATION
     Dosage: UNK
     Route: 065
  2. RIXATHON [Suspect]
     Active Substance: RITUXIMAB
     Indication: RHEUMATOID ARTHRITIS
     Dosage: 1000 MG
     Route: 042
     Dates: start: 20181121, end: 20181121

REACTIONS (14)
  - Bone disorder [Unknown]
  - Bone marrow disorder [Unknown]
  - Arthralgia [Unknown]
  - Pyrexia [Unknown]
  - Depressed mood [Recovered/Resolved]
  - Plasma cell myeloma [Unknown]
  - Bone lesion [Unknown]
  - Dehydration [Unknown]
  - Diarrhoea [Recovered/Resolved]
  - Light chain analysis increased [Unknown]
  - Fluid intake reduced [Unknown]
  - Malaise [Unknown]
  - Nausea [Unknown]
  - Sternal injury [Unknown]

NARRATIVE: CASE EVENT DATE: 20190109
